FAERS Safety Report 12892398 (Version 1)
Quarter: 2016Q4

REPORT INFORMATION
  Report Type: Spontaneous
  Country: CA (occurrence: CA)
  Receive Date: 20161028
  Receipt Date: 20161028
  Transmission Date: 20170207
  Serious: Yes (Death)
  Sender: FDA-Public Use
  Company Number: CA-ACTELION-A-NJ2016-144720

PATIENT
  Age: 65 Year
  Sex: Female

DRUGS (15)
  1. K-DUR [Concomitant]
     Active Substance: POTASSIUM CHLORIDE
     Dosage: 20 MEQ, UNK
  2. SPIRONOLACTONE. [Concomitant]
     Active Substance: SPIRONOLACTONE
  3. TRAMADOL HYDROCHLORIDE. [Concomitant]
     Active Substance: TRAMADOL HYDROCHLORIDE
  4. GABAPENTIN. [Concomitant]
     Active Substance: GABAPENTIN
  5. LEVOTHYROXINE. [Concomitant]
     Active Substance: LEVOTHYROXINE
  6. METOPROLOL. [Concomitant]
     Active Substance: METOPROLOL
  7. AMIODARONE [Concomitant]
     Active Substance: AMIODARONE
  8. CHLORTHALIDONE. [Concomitant]
     Active Substance: CHLORTHALIDONE
  9. FOLIC ACID. [Concomitant]
     Active Substance: FOLIC ACID
  10. METOLAZONE. [Concomitant]
     Active Substance: METOLAZONE
  11. PROLIA [Concomitant]
     Active Substance: DENOSUMAB
  12. PREDNISONE. [Concomitant]
     Active Substance: PREDNISONE
  13. WARFARIN [Concomitant]
     Active Substance: WARFARIN
  14. LETROZOLE. [Concomitant]
     Active Substance: LETROZOLE
  15. TRACLEER [Suspect]
     Active Substance: BOSENTAN
     Indication: PULMONARY HYPERTENSION
     Dosage: 125 MG, QD
     Route: 048

REACTIONS (1)
  - Heart rate irregular [Fatal]
